FAERS Safety Report 5023841-9 (Version None)
Quarter: 2006Q2

REPORT INFORMATION
  Report Type: 
  Country: None (occurrence: None)
  Receive Date: 20060606
  Receipt Date: 20060530
  Transmission Date: 20061013
  Serious: Yes (Hospitalization)
  Sender: FDA-Public Use
  Company Number: 225727

PATIENT
  Age: 59 Year
  Sex: Female

DRUGS (1)
  1. RITUXAN [Suspect]
     Indication: B-CELL LYMPHOMA
     Dates: start: 20030701, end: 20041201

REACTIONS (3)
  - ARTHRITIS [None]
  - DIFFICULTY IN WALKING [None]
  - INFUSION RELATED REACTION [None]
